FAERS Safety Report 11692987 (Version 2)
Quarter: 2018Q3

REPORT INFORMATION
  Report Type: Spontaneous
  Country: US (occurrence: US)
  Receive Date: 20151103
  Receipt Date: 20180709
  Transmission Date: 20181010
  Serious: Yes (Other)
  Sender: FDA-Public Use
  Company Number: US-BAYER-2015-398413

PATIENT
  Age: 40 Year
  Sex: Female

DRUGS (4)
  1. CHANTIX [Concomitant]
     Active Substance: VARENICLINE TARTRATE
  2. MIRENA [Suspect]
     Active Substance: LEVONORGESTREL
  3. CLARITIN [Concomitant]
     Active Substance: LORATADINE
  4. FLONASE [Concomitant]
     Active Substance: FLUTICASONE PROPIONATE

REACTIONS (24)
  - Procedural haemorrhage [Recovered/Resolved]
  - Mood swings [Unknown]
  - Weight increased [Unknown]
  - Nausea [Recovered/Resolved]
  - Pelvic pain [Recovered/Resolved]
  - Endometritis [Unknown]
  - Abdominal pain [Unknown]
  - Acne [Unknown]
  - Menorrhagia [Unknown]
  - Human papilloma virus test positive [Unknown]
  - Uterine pain [Recovered/Resolved]
  - Bacterial vaginosis [Unknown]
  - Dysmenorrhoea [Unknown]
  - Dyspareunia [Unknown]
  - Suprapubic pain [Recovered/Resolved]
  - Uterine cyst [Unknown]
  - Abdominal pain [Recovered/Resolved]
  - Genital haemorrhage [Unknown]
  - Haemorrhagic ovarian cyst [Unknown]
  - Menorrhagia [Unknown]
  - Vaginal haemorrhage [Unknown]
  - Vulvovaginal pain [Recovered/Resolved]
  - Dysfunctional uterine bleeding [Unknown]
  - Fatigue [Recovered/Resolved]

NARRATIVE: CASE EVENT DATE: 201201
